FAERS Safety Report 9913268 (Version 1)
Quarter: 2014Q1

REPORT INFORMATION
  Report Type: Spontaneous
  Country: US (occurrence: US)
  Receive Date: 20140220
  Receipt Date: 20140220
  Transmission Date: 20141002
  Serious: Yes (Other)
  Sender: FDA-Public Use
  Company Number: US-ROCHE-1352996

PATIENT
  Age: 57 Year
  Sex: Female

DRUGS (1)
  1. PERJETA [Suspect]
     Indication: BREAST CANCER METASTATIC
     Dosage: Q 3 WEEKS, THIRD CYCLE
     Route: 042

REACTIONS (3)
  - Tachycardia [Recovered/Resolved]
  - Dyspnoea [Recovered/Resolved]
  - Flushing [Recovered/Resolved]
